FAERS Safety Report 23020587 (Version 2)
Quarter: 2023Q4

REPORT INFORMATION
  Report Type: Spontaneous
  Country: DK (occurrence: DK)
  Receive Date: 20231003
  Receipt Date: 20231023
  Transmission Date: 20240109
  Serious: Yes (Other)
  Sender: FDA-Public Use
  Company Number: DK-BAYER-2023A136407

PATIENT
  Age: 77 Year

DRUGS (1)
  1. XOFIGO [Suspect]
     Active Substance: RADIUM RA-223 DICHLORIDE
     Dosage: UNK
     Dates: start: 20230802, end: 20230802

REACTIONS (5)
  - Lymphadenopathy [None]
  - Prostate cancer metastatic [None]
  - Lymphadenectomy [None]
  - Prostate cancer metastatic [None]
  - Metastases to bone [None]
